FAERS Safety Report 5604990-0 (Version None)
Quarter: 2008Q1

REPORT INFORMATION
  Report Type: 
  Country: None (occurrence: None)
  Receive Date: 20080128
  Receipt Date: 20080123
  Transmission Date: 20080703
  Serious: Yes (Other)
  Sender: FDA-Public Use
  Company Number: JP-BOEHRINGER INGELHEIM PHARMACEUTICALS, INC.-2007-BP-26606NB

PATIENT
  Sex: Male
  Weight: 73 kg

DRUGS (8)
  1. SPIRIVA [Suspect]
     Indication: EMPHYSEMA
     Route: 055
     Dates: start: 20070821, end: 20071122
  2. RABEPRAZOLE SODIUM [Concomitant]
     Indication: GASTRIC ULCER
     Route: 048
  3. ASPIRIN [Concomitant]
     Indication: ANGINA PECTORIS
     Route: 048
  4. ADALAT [Concomitant]
     Indication: HYPERTENSION
     Route: 048
  5. ADALAT [Concomitant]
     Indication: ANGINA PECTORIS
  6. MUCODYNE [Concomitant]
     Indication: LUNG NEOPLASM MALIGNANT
     Route: 048
  7. FRANDOL S [Concomitant]
     Indication: ANGINA PECTORIS
     Route: 062
  8. MARZULENE-S [Concomitant]
     Indication: GASTRIC ULCER
     Route: 048

REACTIONS (1)
  - LUNG NEOPLASM MALIGNANT [None]
